FAERS Safety Report 9020423 (Version 1)
Quarter: 2013Q1

REPORT INFORMATION
  Report Type: Spontaneous
  Country: US (occurrence: US)
  Receive Date: 20130119
  Receipt Date: 20130119
  Transmission Date: 20140127
  Serious: No
  Sender: FDA-Public Use
  Company Number: US-ALLERGAN-1208686US

PATIENT
  Age: 46 Year
  Sex: Female

DRUGS (3)
  1. BOTOX COSMETIC [Suspect]
     Indication: SKIN WRINKLING
     Dosage: 11 UNITS, SINGLE
     Route: 030
     Dates: start: 20120608, end: 20120608
  2. ADVIL [Concomitant]
     Indication: NASOPHARYNGITIS
  3. PREDNISOLONE [Concomitant]

REACTIONS (6)
  - Hypoaesthesia oral [Recovered/Resolved]
  - Wrong technique in drug usage process [Unknown]
  - Hyperhidrosis [Recovered/Resolved]
  - Influenza like illness [Recovered/Resolved]
  - Headache [Recovered/Resolved]
  - Diarrhoea [Recovered/Resolved]
